FAERS Safety Report 18137032 (Version 1)
Quarter: 2020Q3

REPORT INFORMATION
  Report Type: Spontaneous
  Country: NL (occurrence: NL)
  Receive Date: 20200811
  Receipt Date: 20200811
  Transmission Date: 20201103
  Serious: Yes (Life-Threatening, Hospitalization, Other)
  Sender: FDA-Public Use
  Company Number: NVSC2020NL220203

PATIENT
  Age: 35 Year
  Sex: Male
  Weight: 89 kg

DRUGS (27)
  1. KALETRA [Interacting]
     Active Substance: LOPINAVIR\RITONAVIR
     Indication: COVID-19
     Dosage: 2 DF, QD (UNIT DOSE: 400/100 MG)
     Route: 048
     Dates: start: 202003, end: 202003
  2. KALETRA [Interacting]
     Active Substance: LOPINAVIR\RITONAVIR
     Indication: COVID-19 PNEUMONIA
     Dosage: 4 DF, QD (2X PER DAG 2 STUKS)
     Route: 048
     Dates: start: 20200310, end: 20200314
  3. ACETAMINOPHEN (PARACETAMOL) [Suspect]
     Active Substance: ACETAMINOPHEN
     Indication: PYREXIA
     Dosage: UNK
     Route: 065
     Dates: start: 2020
  4. EVEROLIMUS. [Interacting]
     Active Substance: EVEROLIMUS
     Indication: IMMUNOSUPPRESSANT DRUG THERAPY
     Dosage: 3 MG, BID (0.5 DAY)
     Route: 065
     Dates: start: 202003, end: 202003
  5. EVEROLIMUS. [Interacting]
     Active Substance: EVEROLIMUS
     Dosage: 2 MG, QD
     Route: 065
     Dates: start: 202003, end: 202003
  6. EVEROLIMUS. [Interacting]
     Active Substance: EVEROLIMUS
     Dosage: 0.5 DF, QD
     Route: 065
     Dates: start: 202003, end: 202003
  7. KALETRA [Interacting]
     Active Substance: LOPINAVIR\RITONAVIR
     Indication: ANTIVIRAL TREATMENT
     Dosage: 2 DF, QD (1 DOSAGE FORM, BID (0.5 DAY))
     Route: 065
     Dates: start: 202003, end: 202003
  8. ACETAMINOPHEN (PARACETAMOL) [Suspect]
     Active Substance: ACETAMINOPHEN
     Indication: MYALGIA
  9. EVEROLIMUS. [Interacting]
     Active Substance: EVEROLIMUS
     Dosage: 3 MG, BID
     Route: 065
     Dates: start: 2016, end: 2020
  10. EVEROLIMUS. [Interacting]
     Active Substance: EVEROLIMUS
     Dosage: 2 MG, BID
     Route: 065
     Dates: start: 2020
  11. KALETRA [Interacting]
     Active Substance: LOPINAVIR\RITONAVIR
     Dosage: 05 DF, QD
     Route: 065
     Dates: start: 202003, end: 202003
  12. PREDNISOLONE. [Interacting]
     Active Substance: PREDNISOLONE
     Dosage: 7.5 MG, QD
     Route: 065
     Dates: start: 2016
  13. EVEROLIMUS. [Interacting]
     Active Substance: EVEROLIMUS
     Dosage: 2 MG, BID (0.5 DAY)
     Route: 065
  14. ACETAMINOPHEN (PARACETAMOL) [Suspect]
     Active Substance: ACETAMINOPHEN
     Indication: HEADACHE
     Dosage: UNK
     Route: 065
     Dates: start: 202002
  15. EVEROLIMUS. [Interacting]
     Active Substance: EVEROLIMUS
     Indication: RENAL TRANSPLANT
     Dosage: 3 MG, QD
     Route: 065
     Dates: start: 2016, end: 202003
  16. CHLOROQUINE. [Interacting]
     Active Substance: CHLOROQUINE
     Dosage: 300 MG, BID
     Route: 048
     Dates: start: 20200311, end: 202003
  17. ACETAMINOPHEN (PARACETAMOL) [Suspect]
     Active Substance: ACETAMINOPHEN
     Indication: MALAISE
     Dosage: UNK
     Route: 065
  18. CHLOROQUINE. [Interacting]
     Active Substance: CHLOROQUINE
     Indication: COVID-19 PNEUMONIA
     Dosage: 600 MG, QD
     Route: 048
     Dates: start: 202003, end: 202003
  19. PREDNISOLONE. [Suspect]
     Active Substance: PREDNISOLONE
     Indication: IMMUNOSUPPRESSANT DRUG THERAPY
     Dosage: 7.5 MG, QD
     Route: 065
  20. EVEROLIMUS. [Interacting]
     Active Substance: EVEROLIMUS
     Dosage: 4 MG, QD
     Route: 065
     Dates: start: 202003, end: 202003
  21. ACETAMINOPHEN (PARACETAMOL) [Suspect]
     Active Substance: ACETAMINOPHEN
     Indication: COUGH
     Dosage: UNK
     Route: 065
  22. EVEROLIMUS. [Interacting]
     Active Substance: EVEROLIMUS
     Dosage: 6 MG, QD
     Route: 065
     Dates: start: 2016, end: 202003
  23. EVEROLIMUS. [Interacting]
     Active Substance: EVEROLIMUS
     Dosage: 1.5 MG, QD
     Route: 065
     Dates: start: 2016, end: 202003
  24. KALETRA [Interacting]
     Active Substance: LOPINAVIR\RITONAVIR
     Dosage: 2 DF, QD (UNIT DOSE: 400/100 MG)
     Route: 048
     Dates: start: 202003, end: 202003
  25. CHLOROQUINE. [Interacting]
     Active Substance: CHLOROQUINE
     Indication: COVID-19
     Dosage: 300 MG, BID
     Route: 048
     Dates: start: 202003, end: 202003
  26. CHLOROQUINE. [Interacting]
     Active Substance: CHLOROQUINE
     Dosage: 600 MG (LOADING DOSE)
     Route: 048
     Dates: start: 20200310, end: 202003
  27. CHLOROQUINE. [Interacting]
     Active Substance: CHLOROQUINE
     Dosage: 150 MG, QD
     Route: 048
     Dates: start: 202003, end: 202003

REACTIONS (39)
  - Condition aggravated [Recovered/Resolved]
  - Renal failure [Recovering/Resolving]
  - Headache [Recovering/Resolving]
  - Interstitial lung disease [Recovered/Resolved]
  - Respiratory alkalosis [Recovered/Resolved]
  - Toxicity to various agents [Recovered/Resolved]
  - Rhinorrhoea [Recovering/Resolving]
  - COVID-19 [Recovered/Resolved]
  - Hypoxia [Recovering/Resolving]
  - Acute respiratory distress syndrome [Recovering/Resolving]
  - Lung consolidation [Recovering/Resolving]
  - Nasal congestion [Recovering/Resolving]
  - Intentional product misuse [Unknown]
  - Cough [Recovering/Resolving]
  - COVID-19 pneumonia [Recovering/Resolving]
  - Diarrhoea [Recovering/Resolving]
  - Tubulointerstitial nephritis [Not Recovered/Not Resolved]
  - Acute kidney injury [Recovering/Resolving]
  - Off label use [Recovering/Resolving]
  - Acute pulmonary oedema [Recovered/Resolved]
  - Respiratory failure [Recovering/Resolving]
  - Pyrexia [Recovering/Resolving]
  - Lymphopenia [Recovering/Resolving]
  - Pulmonary toxicity [Recovered/Resolved]
  - Metabolic acidosis [Not Recovered/Not Resolved]
  - Drug interaction [Recovering/Resolving]
  - Transaminases increased [Recovered/Resolved]
  - Nausea [Recovering/Resolving]
  - Tachypnoea [Recovering/Resolving]
  - Rales [Recovering/Resolving]
  - Malaise [Recovering/Resolving]
  - Drug abuse [Unknown]
  - Pneumococcal infection [Unknown]
  - Rhabdomyolysis [Recovered/Resolved]
  - Renal impairment [Recovering/Resolving]
  - Dyspnoea [Recovering/Resolving]
  - Vomiting [Recovering/Resolving]
  - Productive cough [Recovering/Resolving]
  - Myalgia [Recovering/Resolving]

NARRATIVE: CASE EVENT DATE: 202002
